FAERS Safety Report 6668340-3 (Version None)
Quarter: 2010Q2

REPORT INFORMATION
  Report Type: 
  Country: None (occurrence: None)
  Receive Date: 20100401
  Receipt Date: 20100318
  Transmission Date: 20101027
  Serious: Yes (Other)
  Sender: FDA-Public Use
  Company Number: 009035

PATIENT

DRUGS (1)
  1. PROSTAGLANDIN E1 (PROSTAGLANDIN E1) [Suspect]

REACTIONS (6)
  - BLOOD ALKALINE PHOSPHATASE INCREASED [None]
  - EXOSTOSIS [None]
  - INFECTION [None]
  - INTRACARDIAC THROMBUS [None]
  - MEDICAL DEVICE COMPLICATION [None]
  - TENDERNESS [None]
